FAERS Safety Report 7348034-1 (Version None)
Quarter: 2011Q1

REPORT INFORMATION
  Report Type: 
  Country: None (occurrence: None)
  Receive Date: 20110311
  Receipt Date: 20110301
  Transmission Date: 20110831
  Serious: Yes (Hospitalization)
  Sender: FDA-Public Use
  Company Number: US-BAYER-2011-022012

PATIENT
  Sex: Female

DRUGS (2)
  1. YASMIN [Suspect]
     Dosage: UNK
     Dates: start: 20071201
  2. YAZ [Suspect]
     Indication: CONTRACEPTION
     Dosage: UNK
     Dates: start: 20071026

REACTIONS (7)
  - CONVULSION [None]
  - CEREBROVASCULAR ACCIDENT [None]
  - CEREBRAL HAEMORRHAGE [None]
  - MENTAL STATUS CHANGES [None]
  - DYSARTHRIA [None]
  - SUPERIOR SAGITTAL SINUS THROMBOSIS [None]
  - HEMIPARESIS [None]
